FAERS Safety Report 5158924-6 (Version None)
Quarter: 2006Q4

REPORT INFORMATION
  Report Type: 
  Country: None (occurrence: None)
  Receive Date: 20061117
  Receipt Date: 20061024
  Transmission Date: 20070319
  Serious: Yes (Death)
  Sender: FDA-Public Use
  Company Number: DSA_28907_2006

PATIENT
  Age: 31 Year
  Sex: 0

DRUGS (3)
  1. LORAZEPAM [Suspect]
     Dosage: DF PO
     Route: 048
  2. MIRTAZAPINE [Suspect]
     Dosage: DF PO
     Route: 048
  3. ACETAMINOPHEN [Suspect]
     Dosage: DF PO
     Route: 048

REACTIONS (4)
  - CARDIAC ARREST [None]
  - DRUG ABUSER [None]
  - POISONING [None]
  - RESPIRATORY ARREST [None]
